FAERS Safety Report 9725293 (Version 2)
Quarter: 2013Q4

REPORT INFORMATION
  Report Type: Spontaneous
  Country: US (occurrence: None)
  Receive Date: 20131129
  Receipt Date: 20131206
  Transmission Date: 20140711
  Serious: Yes (Hospitalization)
  Sender: FDA-Public Use
  Company Number: AUR-APL-2013-09923

PATIENT
  Age: 60 Year
  Sex: Male
  Weight: 98 kg

DRUGS (3)
  1. RAMIPRIL (RAMIPRIL) [Suspect]
     Indication: HYPERTENSION
     Route: 048
     Dates: start: 20131005
  2. AMIODARONE (AMIODARONE) [Suspect]
     Indication: ATRIAL FIBRILLATION
     Route: 051
     Dates: start: 20131005, end: 20131006
  3. DABIGATRAM [Suspect]
     Indication: ATRIAL FIBRILLATION
     Route: 048
     Dates: start: 20131005

REACTIONS (1)
  - Atrial fibrillation [None]
